FAERS Safety Report 23597792 (Version 2)
Quarter: 2024Q1

REPORT INFORMATION
  Report Type: Spontaneous
  Country: US (occurrence: US)
  Receive Date: 20240305
  Receipt Date: 20240326
  Transmission Date: 20240410
  Serious: No
  Sender: FDA-Public Use
  Company Number: US-MYLANLABS-2024M1014398

PATIENT
  Sex: Female
  Weight: 58.97 kg

DRUGS (24)
  1. TYRVAYA [Suspect]
     Active Substance: VARENICLINE TARTRATE
     Indication: Sjogren^s syndrome
     Dosage: UNK, BID (ONE SPRAY IN EACH NOSTRIL TWO TIMES A DAY, MORNING AND NIGHT)
     Route: 045
  2. GABAPENTIN [Concomitant]
     Active Substance: GABAPENTIN
     Indication: Headache
     Dosage: UNK (TAKE 4 THREE TIMES DAY)
     Route: 065
  3. TYLENOL [Concomitant]
     Active Substance: ACETAMINOPHEN
     Indication: Pain
     Dosage: UNK, (AS NEEDED)
     Route: 065
  4. VITAMIN C [Concomitant]
     Active Substance: ASCORBIC ACID
     Dosage: UNK, BID (TAKEN AT AM + PM)
     Route: 065
  5. ASPIRIN [Concomitant]
     Active Substance: ASPIRIN
     Indication: Cerebrovascular accident
     Dosage: UNK, QD (TAKEN AT AM)
     Route: 065
  6. BIOTENE NOS [Concomitant]
     Active Substance: CETYLPYRIDINIUM CHLORIDE OR SODIUM FLUORIDE OR SODIUM MONOFLUOROPHOSPHATE OR GLUCOSE OXIDASE\LACTOFE
     Indication: Dry mouth
     Dosage: UNK (TAKEN AS NEEDED)
     Route: 065
  7. CALCIUM LACTATE [Concomitant]
     Active Substance: CALCIUM LACTATE
     Indication: Bone density abnormal
     Dosage: UNK, BID (2 AM-2 BEDTIME)
     Route: 065
  8. CHOLESTYRAMINE [Concomitant]
     Active Substance: CHOLESTYRAMINE
     Indication: Burning mouth syndrome
     Dosage: UNK, QD (TAKEN W/ LUNCH)
     Route: 065
  9. VITAMIN D3 [Concomitant]
     Active Substance: CHOLECALCIFEROL
     Dosage: UNK, (TAKEN AT WINTER)
     Route: 065
  10. DICLOFENAC SODIUM [Concomitant]
     Active Substance: DICLOFENAC\DICLOFENAC SODIUM
     Indication: Rheumatoid arthritis
     Dosage: UNK, (TAKEN AS NEEDED)
     Route: 061
  11. DICLOFENAC SODIUM [Concomitant]
     Active Substance: DICLOFENAC\DICLOFENAC SODIUM
     Indication: Pain
  12. CYMBALTA [Concomitant]
     Active Substance: DULOXETINE HYDROCHLORIDE
     Indication: Fibromyalgia
     Dosage: UNK, (TAKEN W/SUPPER)
     Route: 065
  13. REFRESH OPTIVE [Concomitant]
     Active Substance: CARBOXYMETHYLCELLULOSE SODIUM\GLYCERIN
     Indication: Dry eye
     Dosage: UNK, (TAKEN AS NEEDED)
     Route: 065
  14. FIBROEASE [Concomitant]
     Indication: Fibromyalgia
     Dosage: UNK, BID (TAKEN AT 1AM-1 PM)
     Route: 065
  15. IPRATROPIUM BROMIDE [Concomitant]
     Active Substance: IPRATROPIUM BROMIDE\IPRATROPIUM BROMIDE ANHYDROUS
     Indication: Rhinorrhoea
     Dosage: UNK,(TAKEN AS NEEDED (MOST LIKELY DEC.-APRIL))
     Route: 065
  16. LEFLUNOMIDE [Concomitant]
     Active Substance: LEFLUNOMIDE
     Indication: Rheumatoid arthritis
     Dosage: UNK, QD,(TAKEN AT 2AM)
     Route: 065
  17. MELOXICAM [Concomitant]
     Active Substance: MELOXICAM
     Indication: Rheumatoid arthritis
     Dosage: UNK, QD (TAKE 1 PER DAY)
     Route: 065
  18. OMEGA 3 [Concomitant]
     Active Substance: CAPSAICIN
     Indication: Dry eye
     Dosage: UNK, BID (TAKEN AT AM + PM)
     Route: 065
  19. PROBIOTICS NOS [Concomitant]
     Active Substance: PROBIOTICS NOS
     Dosage: UNK, QD,(TAKEN AT AM)
     Route: 065
  20. RESTASIS [Concomitant]
     Active Substance: CYCLOSPORINE
     Indication: Dry eye
     Dosage: UNK, BID (TAKE 1 DROP EACH EYE AM + BEDTIME)
     Route: 065
  21. SULFASALAZINE DELAYED-RELEASE [Concomitant]
     Active Substance: SULFASALAZINE
     Indication: Rheumatoid arthritis
     Dosage: UNK, BID, (TAKEN AT 1 AM + PM)
     Route: 065
  22. TRIAMCINOLONE ACETONIDE [Concomitant]
     Active Substance: TRIAMCINOLONE ACETONIDE
     Indication: Ear pain
     Dosage: UNK, (TAKE A TINY AMOUNT EVERY OTHER DAY)
     Route: 065
  23. ZYRTEC [Concomitant]
     Active Substance: CETIRIZINE HYDROCHLORIDE
     Indication: Antiallergic therapy
     Dosage: UNK, (TAKEN AS NEEDED)
     Route: 065
  24. METOPROLOL SUCCINATE [Concomitant]
     Active Substance: METOPROLOL SUCCINATE
     Dosage: UNK
     Route: 065

REACTIONS (3)
  - Sneezing [Unknown]
  - Product delivery mechanism issue [Unknown]
  - Product dose omission issue [Unknown]
